FAERS Safety Report 9430105 (Version 5)
Quarter: 2014Q1

REPORT INFORMATION
  Report Type: Report from Study
  Country: US (occurrence: US)
  Receive Date: 20130730
  Receipt Date: 20140319
  Transmission Date: 20141002
  Serious: Yes (Hospitalization)
  Sender: FDA-Public Use
  Company Number: US-JNJFOC-20130714566

PATIENT
  Age: 66 Year
  Sex: Female
  Weight: 97.4 kg

DRUGS (2)
  1. REMICADE [Suspect]
     Indication: PSORIASIS
     Dosage: ONCE EVERY 7-8 WEEKS
     Route: 042
     Dates: start: 200610
  2. METHOTREXATE [Suspect]
     Indication: PRODUCT USED FOR UNKNOWN INDICATION
     Route: 065

REACTIONS (5)
  - Pancreatitis [Recovered/Resolved]
  - Bile duct stone [Recovered/Resolved]
  - Clostridium difficile infection [Recovered/Resolved]
  - Cholecystitis chronic [Recovered/Resolved]
  - Bacteraemia [Recovered/Resolved]
